FAERS Safety Report 16193428 (Version 1)
Quarter: 2019Q2

REPORT INFORMATION
  Report Type: Spontaneous
  Country: US (occurrence: US)
  Receive Date: 20190413
  Receipt Date: 20190413
  Transmission Date: 20190711
  Serious: Yes (Disabling, Other)
  Sender: FDA-Public Use
  Company Number: US-009507513-1807USA006028

PATIENT
  Sex: Female
  Weight: 58.05 kg

DRUGS (3)
  1. HYZAAR [Suspect]
     Active Substance: HYDROCHLOROTHIAZIDE\LOSARTAN POTASSIUM
     Indication: PRODUCT USED FOR UNKNOWN INDICATION
     Dosage: 1 TABLET, QD
     Route: 048
     Dates: end: 20180412
  2. JANUMET [Suspect]
     Active Substance: METFORMIN HYDROCHLORIDE\SITAGLIPTIN PHOSPHATE
     Indication: PRODUCT USED FOR UNKNOWN INDICATION
     Dosage: 2 TABLETS, QD
     Route: 048
     Dates: end: 20180412
  3. ZOSTAVAX [Suspect]
     Active Substance: VARICELLA-ZOSTER VIRUS STRAIN OKA/MERCK LIVE ANTIGEN
     Indication: PROPHYLAXIS
     Route: 065
     Dates: start: 20131015, end: 20131015

REACTIONS (25)
  - Abdominal pain upper [Unknown]
  - Nausea [Not Recovered/Not Resolved]
  - Synovial cyst [Unknown]
  - Osteoarthritis [Unknown]
  - Herpes zoster [Recovering/Resolving]
  - Post herpetic neuralgia [Unknown]
  - Arthropathy [Unknown]
  - Intervertebral disc disorder [Not Recovered/Not Resolved]
  - Vomiting [Not Recovered/Not Resolved]
  - Intervertebral disc protrusion [Unknown]
  - Pleurisy [Unknown]
  - Spinal osteoarthritis [Not Recovered/Not Resolved]
  - Breast cyst [Unknown]
  - Dysuria [Unknown]
  - Diplegia [Unknown]
  - Pancreatic disorder [Unknown]
  - Dyspnoea [Not Recovered/Not Resolved]
  - Muscle spasms [Unknown]
  - Anaemia [Unknown]
  - Musculoskeletal pain [Unknown]
  - Cervical radiculopathy [Not Recovered/Not Resolved]
  - Vertebral foraminal stenosis [Not Recovered/Not Resolved]
  - Gallbladder disorder [Unknown]
  - Spondylolysis [Not Recovered/Not Resolved]
  - Renal disorder [Unknown]

NARRATIVE: CASE EVENT DATE: 2014
